FAERS Safety Report 25976525 (Version 1)
Quarter: 2025Q4

REPORT INFORMATION
  Report Type: Spontaneous
  Country: US (occurrence: US)
  Receive Date: 20251029
  Receipt Date: 20251029
  Transmission Date: 20260118
  Serious: Yes (Other)
  Sender: ABBVIE
  Company Number: US-ABBVIE-6520424

PATIENT
  Sex: Male

DRUGS (1)
  1. ACUVAIL [Suspect]
     Active Substance: KETOROLAC TROMETHAMINE
     Indication: Retinal oedema
     Dosage: PATIENT ROA: OPHTHALMIC
     Route: 065

REACTIONS (5)
  - Blindness [Unknown]
  - Off label use [Unknown]
  - Drug intolerance [Unknown]
  - Eye irritation [Unknown]
  - Corneal implant [Unknown]
